FAERS Safety Report 24567467 (Version 1)
Quarter: 2024Q4

REPORT INFORMATION
  Report Type: Report from Study
  Country: US (occurrence: US)
  Receive Date: 20241030
  Receipt Date: 20241030
  Transmission Date: 20250114
  Serious: No
  Sender: ASTELLAS
  Company Number: US-ASTELLAS-2024-AER-014993

PATIENT

DRUGS (1)
  1. AVACINCAPTAD PEGOL [Suspect]
     Active Substance: AVACINCAPTAD PEGOL
     Indication: Product used for unknown indication
     Dosage: 1 VIAL (2MG 1ML OF 20MG/ML)
     Route: 050

REACTIONS (2)
  - No adverse event [Unknown]
  - Needle issue [Unknown]
